FAERS Safety Report 6801363 (Version 8)
Quarter: 2016Q4

REPORT INFORMATION
  Report Type: Report from Study
  Country: SE (occurrence: SE)
  Receive Date: 20081031
  Receipt Date: 20161115
  Transmission Date: 20170207
  Serious: Yes (Hospitalization)
  Sender: FDA-Public Use
  Company Number: SE-JNJFOC-20081005526

PATIENT
  Age: 36 Year
  Sex: Male
  Weight: 70 kg

DRUGS (5)
  1. PRIMPERAN [Concomitant]
     Active Substance: METOCLOPRAMIDE HYDROCHLORIDE
     Indication: NAUSEA
     Route: 048
     Dates: start: 20080506, end: 20080526
  2. MESASAL [Concomitant]
     Route: 054
     Dates: start: 20080515
  3. OMEPRAZOL [Concomitant]
     Active Substance: OMEPRAZOLE
     Indication: DYSPEPSIA
     Route: 048
     Dates: start: 20080506, end: 20080519
  4. REMICADE [Suspect]
     Active Substance: INFLIXIMAB
     Indication: COLITIS ULCERATIVE
     Route: 042
     Dates: start: 20080509, end: 20080509
  5. CALICHEW [Concomitant]
     Indication: OSTEOPOROSIS PROPHYLAXIS
     Dosage: 500/400 MG TWICE A DAY
     Route: 048
     Dates: start: 20080502

REACTIONS (4)
  - Arthritis bacterial [Recovered/Resolved]
  - Synovitis [Recovered/Resolved]
  - Colitis ulcerative [Recovered/Resolved]
  - Colectomy [Recovered/Resolved]

NARRATIVE: CASE EVENT DATE: 20080509
